FAERS Safety Report 6906712-X (Version None)
Quarter: 2010Q3

REPORT INFORMATION
  Report Type: 
  Country: None (occurrence: None)
  Receive Date: 20100802
  Receipt Date: 20100714
  Transmission Date: 20110219
  Serious: Yes (Hospitalization, Other)
  Sender: FDA-Public Use
  Company Number: JPI-P-005956

PATIENT
  Age: 56 Year
  Sex: Female

DRUGS (15)
  1. XYREM [Suspect]
     Indication: CATAPLEXY
     Dosage: ORAL, 4.5 GM (2.25 GM, 2 IN 1 D), ORAL, 6 GM (3 GM, 2 IN 1 D), ORAL, 6 GM (3 GM, 2 IN 1 D), ORAL
     Route: 048
     Dates: end: 20080301
  2. XYREM [Suspect]
     Indication: CATAPLEXY
     Dosage: ORAL, 4.5 GM (2.25 GM, 2 IN 1 D), ORAL, 6 GM (3 GM, 2 IN 1 D), ORAL, 6 GM (3 GM, 2 IN 1 D), ORAL
     Route: 048
     Dates: start: 19990101
  3. XYREM [Suspect]
     Indication: CATAPLEXY
     Dosage: ORAL, 4.5 GM (2.25 GM, 2 IN 1 D), ORAL, 6 GM (3 GM, 2 IN 1 D), ORAL, 6 GM (3 GM, 2 IN 1 D), ORAL
     Route: 048
     Dates: start: 20030106
  4. XYREM [Suspect]
     Indication: CATAPLEXY
     Dosage: ORAL, 4.5 GM (2.25 GM, 2 IN 1 D), ORAL, 6 GM (3 GM, 2 IN 1 D), ORAL, 6 GM (3 GM, 2 IN 1 D), ORAL
     Route: 048
     Dates: start: 20080101
  5. ANESTHESIA [Suspect]
     Indication: CHOLECYSTECTOMY
  6. ANESTHESIA [Suspect]
     Indication: SURGERY
  7. MODAFINIL [Concomitant]
  8. CLOMIPRAMINE HYDROCHLORIDE [Concomitant]
  9. VALSARTAN W/HYDROCHLOROTHIAZIDE [Concomitant]
  10. DILTIAZEM [Concomitant]
  11. ANAFRANIL [Concomitant]
  12. ACETYLSALICYLIC ACID SRT [Concomitant]
  13. TIOTROPIUM [Concomitant]
  14. FLUTICASONE PROPIONATE AND SALMETEROL [Concomitant]
  15. PRAVASTATIN [Concomitant]

REACTIONS (16)
  - ALOPECIA [None]
  - BLOOD PRESSURE INCREASED [None]
  - CATAPLEXY [None]
  - CHOLECYSTECTOMY [None]
  - COMA [None]
  - CORONARY ARTERY OCCLUSION [None]
  - DELAYED RECOVERY FROM ANAESTHESIA [None]
  - HAEMORRHAGE [None]
  - LUNG NEOPLASM MALIGNANT [None]
  - MEMORY IMPAIRMENT [None]
  - NEOPLASM MALIGNANT [None]
  - NIGHTMARE [None]
  - PNEUMONIA [None]
  - POST PROCEDURAL COMPLICATION [None]
  - PROCEDURAL COMPLICATION [None]
  - UNRESPONSIVE TO STIMULI [None]
